FAERS Safety Report 17459366 (Version 2)
Quarter: 2020Q3

REPORT INFORMATION
  Report Type: Spontaneous
  Country: US (occurrence: US)
  Receive Date: 20200225
  Receipt Date: 20200715
  Transmission Date: 20201102
  Serious: Yes (Hospitalization)
  Sender: FDA-Public Use
  Company Number: US-BAUSCH-BL-2020-005283

PATIENT
  Age: 48 Year
  Sex: Male

DRUGS (3)
  1. 5? FLUOROURACIL [Suspect]
     Active Substance: FLUOROURACIL
     Indication: ADENOCARCINOMA GASTRIC
     Dosage: FIRST CYCLE
     Route: 065
  2. OXALIPLATIN. [Suspect]
     Active Substance: OXALIPLATIN
     Indication: GASTROINTESTINAL ADENOCARCINOMA
     Dosage: FIRST CYCLE
     Route: 065
  3. LEUCOVORIN. [Suspect]
     Active Substance: LEUCOVORIN
     Indication: GASTROINTESTINAL ADENOCARCINOMA
     Dosage: FIRST CYCLE
     Route: 065

REACTIONS (1)
  - Tumour lysis syndrome [Recovered/Resolved]
